FAERS Safety Report 13418187 (Version 1)
Quarter: 2017Q2

REPORT INFORMATION
  Report Type: Spontaneous
  Country: None (occurrence: GB)
  Receive Date: 20170406
  Receipt Date: 20170406
  Transmission Date: 20170830
  Serious: Yes (Hospitalization)
  Sender: FDA-Public Use
  Company Number: GB-XIROMED, LLC-1065120

PATIENT
  Age: 74 Year
  Sex: Female

DRUGS (13)
  1. LANSOPRAZOLE. [Suspect]
     Active Substance: LANSOPRAZOLE
     Route: 048
  2. ENALAPRIL MALEATE. [Concomitant]
     Active Substance: ENALAPRIL MALEATE
  3. RITUXIMAB [Concomitant]
     Active Substance: RITUXIMAB
  4. CEPHALEXIN. [Concomitant]
     Active Substance: CEPHALEXIN
  5. ONDANSETRON [Concomitant]
     Active Substance: ONDANSETRON
  6. ACYCLOVIR. [Concomitant]
     Active Substance: ACYCLOVIR
  7. CYCLOPHOSPHAMIDE. [Concomitant]
     Active Substance: CYCLOPHOSPHAMIDE
  8. ALLOPURINOL. [Concomitant]
     Active Substance: ALLOPURINOL
  9. APIXABAN [Concomitant]
     Active Substance: APIXABAN
  10. PREDNISOLONE. [Concomitant]
     Active Substance: PREDNISOLONE
  11. NYSTATIN. [Concomitant]
     Active Substance: NYSTATIN
  12. VINCRISTINE SULFATE. [Suspect]
     Active Substance: VINCRISTINE SULFATE
     Route: 042
  13. DOXAZOSIN [Concomitant]
     Active Substance: DOXAZOSIN\DOXAZOSIN MESYLATE

REACTIONS (2)
  - Hyponatraemia [Recovered/Resolved]
  - Inappropriate antidiuretic hormone secretion [Recovered/Resolved]
